FAERS Safety Report 11671051 (Version 1)
Quarter: 2015Q4

REPORT INFORMATION
  Report Type: Spontaneous
  Country: ES (occurrence: ES)
  Receive Date: 20151028
  Receipt Date: 20151028
  Transmission Date: 20160304
  Serious: Yes (Other)
  Sender: FDA-Public Use
  Company Number: ES-CELGENE-ESP-2015103537

PATIENT
  Age: 66 Year
  Sex: Male

DRUGS (2)
  1. ABRAXANE [Suspect]
     Active Substance: PACLITAXEL
     Indication: PANCREATIC CARCINOMA METASTATIC
     Dosage: 250
     Route: 041
     Dates: start: 20150128
  2. GEMCITABINE [Suspect]
     Active Substance: GEMCITABINE\GEMCITABINE HYDROCHLORIDE
     Indication: PANCREATIC CARCINOMA METASTATIC
     Route: 065
     Dates: start: 20150128

REACTIONS (7)
  - Anaemia [Unknown]
  - Disease progression [Unknown]
  - Decreased appetite [Unknown]
  - Arthralgia [Unknown]
  - Neuropathy peripheral [Unknown]
  - Asthenia [Unknown]
  - Myalgia [Unknown]
